FAERS Safety Report 9959264 (Version 1)
Quarter: 2014Q1

REPORT INFORMATION
  Report Type: Spontaneous
  Country: US (occurrence: None)
  Receive Date: 20140227
  Receipt Date: 20140227
  Transmission Date: 20141002
  Serious: Yes (Other)
  Sender: FDA-Public Use
  Company Number: 2014SA022336

PATIENT
  Age: 70 Year
  Sex: Female

DRUGS (1)
  1. CORTIZONE [Suspect]
     Dosage: UNKNOWN
     Dates: start: 20140213

REACTIONS (6)
  - Chemical injury [None]
  - Hypersensitivity [None]
  - Rash [None]
  - Blister [None]
  - Pain [None]
  - Impaired work ability [None]
